FAERS Safety Report 25261409 (Version 6)
Quarter: 2025Q4

REPORT INFORMATION
  Report Type: Spontaneous
  Country: US (occurrence: US)
  Receive Date: 20250501
  Receipt Date: 20251112
  Transmission Date: 20260118
  Serious: No
  Sender: BIOGEN
  Company Number: US-BIOGEN-2025BI01303129

PATIENT
  Age: 57 Year
  Sex: Male

DRUGS (3)
  1. SKYCLARYS [Suspect]
     Active Substance: OMAVELOXOLONE
     Indication: Friedreich^s ataxia
     Dates: start: 20250410
  2. OMEPRAZOLE [Concomitant]
     Active Substance: OMEPRAZOLE
     Indication: Gastrooesophageal reflux disease
  3. ELIQUIS [Concomitant]
     Active Substance: APIXABAN
     Indication: Product used for unknown indication

REACTIONS (12)
  - Blood triglycerides increased [Unknown]
  - Thirst [Unknown]
  - Allergy to arthropod bite [Unknown]
  - Cough [Unknown]
  - Headache [Unknown]
  - Rash papular [Unknown]
  - Rash pruritic [Unknown]
  - High density lipoprotein decreased [Unknown]
  - Dyspepsia [Unknown]
  - Muscle tightness [Unknown]
  - Anxiety [Unknown]
  - Muscle spasms [Unknown]

NARRATIVE: CASE EVENT DATE: 20250523
